FAERS Safety Report 18542088 (Version 4)
Quarter: 2023Q4

REPORT INFORMATION
  Report Type: Spontaneous
  Country: PK (occurrence: PK)
  Receive Date: 20201125
  Receipt Date: 20231108
  Transmission Date: 20240110
  Serious: Yes (Other)
  Sender: FDA-Public Use
  Company Number: PK-PFIZER INC-2020179544

PATIENT
  Age: 49 Year
  Sex: Male

DRUGS (13)
  1. ENBREL [Suspect]
     Active Substance: ETANERCEPT
     Indication: Ankylosing spondylitis
     Dosage: 50 MG, FORTNIGHTLY
     Route: 058
     Dates: start: 20200429
  2. ENBREL [Suspect]
     Active Substance: ETANERCEPT
     Dosage: 50 MG, EVERY 2 WEEKS
     Route: 058
     Dates: start: 2021
  3. ENBREL [Suspect]
     Active Substance: ETANERCEPT
     Dosage: 50 MG, ONCE A WEEK
     Route: 058
  4. XOBIX [Concomitant]
     Dosage: 15 MG, DAILY
  5. SALAZODINE [Concomitant]
     Indication: Bone disorder
     Dosage: 500MG, 1 TABLET DAILY 7 DAYS, THEN 2 TABLETS 7 DAYS, THEN 3 TABLETS 7 DAYS, THEN 4 TABLETS DAILY
  6. SALAZODINE [Concomitant]
     Dosage: 500 MG, 2+2
  7. TRAMADOL [Concomitant]
     Active Substance: TRAMADOL\TRAMADOL HYDROCHLORIDE
     Dosage: 100 MG, 2X/DAY, CONTINUE
  8. CELBEXX [Concomitant]
     Dosage: 100 MG, 2X/DAY CONTINUE
  9. CONTOUR [ESOMEPRAZOLE MAGNESIUM] [Concomitant]
     Dosage: 40 MG, TAKE ONE TABLET BEFORE BREAKFAST
  10. ETORICOXIB [Concomitant]
     Active Substance: ETORICOXIB
     Dosage: 60 MG, DAILY
  11. Distalgesic [Concomitant]
     Dosage: MORNING
  12. EXLANT [Concomitant]
     Dosage: 30 MG, NIGHT
  13. NUBEROL [Concomitant]
     Dosage: MORNING ONCE AND NIGHT ONCE

REACTIONS (4)
  - Ankylosing spondylitis [Unknown]
  - Musculoskeletal stiffness [Not Recovered/Not Resolved]
  - Off label use [Unknown]
  - Product administration interrupted [Unknown]

NARRATIVE: CASE EVENT DATE: 20200429
